FAERS Safety Report 6215882-0 (Version None)
Quarter: 2009Q2

REPORT INFORMATION
  Report Type: 
  Country: None (occurrence: None)
  Receive Date: 20090605
  Receipt Date: 20090528
  Transmission Date: 20091009
  Serious: Yes (Other)
  Sender: FDA-Public Use
  Company Number: US-ROCHE-630592

PATIENT
  Sex: Male
  Weight: 86.2 kg

DRUGS (2)
  1. ACCUTANE [Suspect]
     Dosage: FORM:PILLS
     Route: 065
     Dates: start: 20090129
  2. ACCUTANE [Suspect]
     Route: 065
     Dates: start: 20090430

REACTIONS (6)
  - FACIAL PALSY [None]
  - HEADACHE [None]
  - HYPOAESTHESIA [None]
  - MIGRAINE [None]
  - MOBILITY DECREASED [None]
  - NEUROLOGICAL SYMPTOM [None]
